FAERS Safety Report 6569274-5 (Version None)
Quarter: 2010Q1

REPORT INFORMATION
  Report Type: 
  Country: None (occurrence: None)
  Receive Date: 20100201
  Receipt Date: 20100201
  Transmission Date: 20100710
  Serious: No
  Sender: FDA-Public Use
  Company Number: None

PATIENT

DRUGS (3)
  1. MYKIDZ IRON WITH VITAMINS (24478-101-04) [Suspect]
     Indication: MEDICAL DIET
     Dosage: 2 ML ONCE DAILY ORAL
     Route: 048
  2. MYKIDZIRON 10 (24478-103-04) NEXT WAVE PHARMACEUTICALS [Suspect]
     Dosage: 2 ML ONCE DAILY ORAL
     Route: 048
  3. MYKIDZ IRON FLUORIDE WITH VITAMINS [Concomitant]

REACTIONS (1)
  - PRODUCT QUALITY ISSUE [None]
